FAERS Safety Report 6242514-8 (Version None)
Quarter: 2009Q2

REPORT INFORMATION
  Report Type: 
  Country: None (occurrence: None)
  Receive Date: 20090622
  Receipt Date: 20090622
  Transmission Date: 20091009
  Serious: No
  Sender: FDA-Public Use
  Company Number: None

PATIENT
  Age: 61 Year
  Sex: Female
  Weight: 104.3273 kg

DRUGS (2)
  1. ZICAM THROAT GEL  ZICAM [Suspect]
     Indication: NASOPHARYNGITIS
     Dates: start: 20050101, end: 20090501
  2. ZICAM GEL SWABS ZICAM [Suspect]
     Indication: NASOPHARYNGITIS
     Dates: start: 20050101, end: 20090501

REACTIONS (2)
  - DYSGEUSIA [None]
  - PAROSMIA [None]
